FAERS Safety Report 6921088-X (Version None)
Quarter: 2010Q3

REPORT INFORMATION
  Report Type: 
  Country: None (occurrence: None)
  Receive Date: 20100812
  Receipt Date: 20100805
  Transmission Date: 20110219
  Serious: Yes (Death, Other)
  Sender: FDA-Public Use
  Company Number: JP-ROCHE-718174

PATIENT
  Sex: Male
  Weight: 69 kg

DRUGS (30)
  1. AVASTIN [Suspect]
     Indication: LUNG ADENOCARCINOMA METASTATIC
     Route: 041
     Dates: start: 20100130, end: 20100625
  2. CARBOPLATIN [Suspect]
     Indication: LUNG ADENOCARCINOMA METASTATIC
     Dosage: DOSAGE IS UNCERTAIN
     Route: 041
     Dates: start: 20100129, end: 20100129
  3. CARBOPLATIN [Suspect]
     Dosage: DOSAGE IS UNCERTAIN
     Route: 041
     Dates: start: 20100302, end: 20100302
  4. CARBOPLATIN [Suspect]
     Dosage: DOSAGE IS UNCERTAIN
     Route: 041
     Dates: start: 20100407, end: 20100407
  5. CARBOPLATIN [Suspect]
     Dosage: DOSAGE IS UNCERTAIN
     Route: 041
     Dates: start: 20100510, end: 20100510
  6. PACLITAXEL [Suspect]
     Indication: LUNG ADENOCARCINOMA METASTATIC
     Dosage: DOSAGE IS UNCERTAIN
     Route: 041
     Dates: start: 20100129, end: 20100129
  7. PACLITAXEL [Suspect]
     Dosage: DOSAGE IS UNCERTAIN
     Route: 041
     Dates: start: 20100302, end: 20100302
  8. PACLITAXEL [Suspect]
     Dosage: DOSAGE IS UNCERTAIN
     Route: 041
     Dates: start: 20100407, end: 20100407
  9. PACLITAXEL [Suspect]
     Dosage: DOSAGE IS UNCERTAIN
     Route: 041
     Dates: start: 20100510, end: 20100510
  10. ZYLORIC [Concomitant]
     Route: 048
     Dates: end: 20100714
  11. MYSLEE [Concomitant]
     Dosage: DOSAGE IS UNCERTAIN
     Route: 048
     Dates: end: 20100714
  12. DECADRON [Concomitant]
     Route: 042
     Dates: start: 20100129, end: 20100129
  13. DECADRON [Concomitant]
     Route: 042
     Dates: start: 20100302, end: 20100302
  14. DECADRON [Concomitant]
     Route: 042
     Dates: start: 20100407, end: 20100407
  15. DECADRON [Concomitant]
     Route: 042
     Dates: start: 20100510, end: 20100510
  16. DECADRON [Concomitant]
     Route: 042
     Dates: start: 20100603, end: 20100603
  17. DECADRON [Concomitant]
     Route: 042
     Dates: start: 20100625, end: 20100625
  18. KYTRIL [Concomitant]
     Route: 042
     Dates: start: 20100129, end: 20100129
  19. KYTRIL [Concomitant]
     Route: 042
     Dates: start: 20100302, end: 20100302
  20. KYTRIL [Concomitant]
     Route: 042
     Dates: start: 20100407, end: 20100407
  21. KYTRIL [Concomitant]
     Route: 042
     Dates: start: 20100510, end: 20100510
  22. ZANTAC [Concomitant]
     Route: 042
     Dates: start: 20100129, end: 20100129
  23. ZANTAC [Concomitant]
     Route: 042
     Dates: start: 20100302, end: 20100302
  24. ZANTAC [Concomitant]
     Route: 042
     Dates: start: 20100407, end: 20100407
  25. ZANTAC [Concomitant]
     Route: 042
     Dates: start: 20100510, end: 20100510
  26. ZANTAC [Concomitant]
     Route: 042
     Dates: start: 20100101, end: 20100714
  27. RESTAMIN [Concomitant]
     Dosage: DOSAGE IS UNCERTAIN
     Route: 048
     Dates: start: 20100129, end: 20100129
  28. RESTAMIN [Concomitant]
     Dosage: DOSAGE IS UNCERTAIN
     Route: 048
     Dates: start: 20100302, end: 20100302
  29. RESTAMIN [Concomitant]
     Dosage: DOSAGE IS UNCERTAIN
     Route: 048
     Dates: start: 20100407, end: 20100407
  30. RESTAMIN [Concomitant]
     Dosage: DOSAGE IS UNCERTAIN
     Route: 048
     Dates: start: 20100510, end: 20100510

REACTIONS (7)
  - CONSTIPATION [None]
  - GASTROINTESTINAL PERFORATION [None]
  - ILEUS [None]
  - INFECTION [None]
  - INTERSTITIAL LUNG DISEASE [None]
  - PAIN [None]
  - SEPSIS [None]
